FAERS Safety Report 14725422 (Version 1)
Quarter: 2018Q2

REPORT INFORMATION
  Report Type: Spontaneous
  Country: IT (occurrence: IT)
  Receive Date: 20180405
  Receipt Date: 20180405
  Transmission Date: 20180711
  Serious: Yes (Hospitalization)
  Sender: FDA-Public Use
  Company Number: PHHY2017IT202113

PATIENT
  Age: 59 Year
  Sex: Male

DRUGS (4)
  1. FLUOXETINE [Suspect]
     Active Substance: FLUOXETINE HYDROCHLORIDE
     Indication: PRODUCT USED FOR UNKNOWN INDICATION
     Dosage: 1 DF, QD (1UG/LITRE)
     Route: 048
     Dates: start: 20100101, end: 20161122
  2. PROTIADEN [Suspect]
     Active Substance: DOTHIEPIN HYDROCHLORIDE
     Indication: PRODUCT USED FOR UNKNOWN INDICATION
     Dosage: 1 DF, QD (1UG/LITRE)
     Route: 048
     Dates: start: 20100101, end: 20161122
  3. ANAFRANIL [Suspect]
     Active Substance: CLOMIPRAMINE HYDROCHLORIDE
     Indication: PRODUCT USED FOR UNKNOWN INDICATION
     Dosage: 2 DF, QD ( (2UG/LITRE))
     Route: 030
     Dates: start: 20100101, end: 20161122
  4. LEVOPRAID (SULPIRIDE) [Suspect]
     Active Substance: SULPIRIDE
     Indication: PRODUCT USED FOR UNKNOWN INDICATION
     Dosage: 1 DF, QD (1UG/LITRE)
     Route: 048
     Dates: start: 20100101, end: 20160501

REACTIONS (4)
  - Speech disorder [Recovering/Resolving]
  - Extrapyramidal disorder [Recovering/Resolving]
  - Bradykinesia [Recovering/Resolving]
  - Somnolence [Recovering/Resolving]

NARRATIVE: CASE EVENT DATE: 20160501
